FAERS Safety Report 5394256-9 (Version None)
Quarter: 2007Q3

REPORT INFORMATION
  Report Type: 
  Country: None (occurrence: None)
  Receive Date: 20070723
  Receipt Date: 20070521
  Transmission Date: 20080115
  Serious: No
  Sender: FDA-Public Use
  Company Number: A0652177A

PATIENT
  Age: 69 Year
  Sex: Female

DRUGS (7)
  1. AVANDIA [Suspect]
     Dosage: 4MG PER DAY
     Route: 048
     Dates: start: 20061201
  2. LIPITOR [Concomitant]
  3. NEXIUM [Concomitant]
  4. LOPRESSOR [Concomitant]
  5. ZOLOFT [Concomitant]
  6. SYNTHROID [Concomitant]
  7. TRICOR [Concomitant]

REACTIONS (1)
  - PRURITUS [None]
